FAERS Safety Report 5474708-3 (Version None)
Quarter: 2007Q3

REPORT INFORMATION
  Report Type: 
  Country: None (occurrence: None)
  Receive Date: 20070927
  Receipt Date: 20070927
  Transmission Date: 20080115
  Serious: Yes (Hospitalization)
  Sender: FDA-Public Use
  Company Number: None

PATIENT
  Sex: Female
  Weight: 79 kg

DRUGS (3)
  1. CARBOPLATIN [Suspect]
     Dosage: 617 MG
  2. DOCETAXEL [Suspect]
     Dosage: 132 MG
  3. TAXOL [Suspect]
     Dosage: 106 MG

REACTIONS (1)
  - NEUTROPENIA [None]
